FAERS Safety Report 20403116 (Version 3)
Quarter: 2022Q1

REPORT INFORMATION
  Report Type: Report from Study
  Country: BE (occurrence: BE)
  Receive Date: 20220131
  Receipt Date: 20220228
  Transmission Date: 20220423
  Serious: Yes (Death, Hospitalization, Other)
  Sender: FDA-Public Use
  Company Number: BE-ABBVIE-22K-013-4252334-00

PATIENT
  Sex: Male
  Weight: 65 kg

DRUGS (9)
  1. CARBIDOPA\LEVODOPA [Suspect]
     Active Substance: CARBIDOPA\LEVODOPA
     Indication: Parkinson^s disease
     Route: 050
     Dates: start: 20201027
  2. CARBIDOPA\LEVODOPA [Suspect]
     Active Substance: CARBIDOPA\LEVODOPA
     Dosage: MD 7.0 ML; CD 3.4 ML/HR DURING 16HOURS; ED 3.0 ML
     Route: 050
     Dates: start: 20201120, end: 20201123
  3. CARBIDOPA\LEVODOPA [Suspect]
     Active Substance: CARBIDOPA\LEVODOPA
     Dosage: MD 7.0 ML; CD 3.6 ML/HR DURING 16HOURS; ED 3.0 ML
     Route: 050
     Dates: start: 20201123, end: 20201218
  4. CARBIDOPA\LEVODOPA [Suspect]
     Active Substance: CARBIDOPA\LEVODOPA
     Dosage: MD 7.0 ML; CD 3.7 ML/HR DURING 16HOURS; ED 3.0 ML
     Route: 050
     Dates: start: 20201218, end: 20210429
  5. CARBIDOPA\LEVODOPA [Suspect]
     Active Substance: CARBIDOPA\LEVODOPA
     Dosage: MD 7.0 ML; CD 3.9 ML/HR DURING 16HOURS; ED 3.0 ML
     Route: 050
     Dates: start: 20210429
  6. MIRAPEXIN OD [Concomitant]
     Indication: Parkinson^s disease
     Dosage: 2.62 UNKNOWN
     Route: 048
  7. DOPA DURA [Concomitant]
     Indication: Parkinson^s disease
     Dosage: 100/25 MG
     Route: 048
  8. AZILECT [Concomitant]
     Active Substance: RASAGILINE MESYLATE
     Indication: Parkinson^s disease
     Dosage: ONCE UNKNOWN
     Route: 048
  9. OXYBUTYNIN [Concomitant]
     Active Substance: OXYBUTYNIN
     Indication: Product used for unknown indication
     Dosage: 0.5 UNKNOWN   ONCE UNKNOWN
     Route: 048

REACTIONS (5)
  - Cerebral haemorrhage [Fatal]
  - Cerebrovascular accident [Unknown]
  - Abdominal pain upper [Unknown]
  - Device issue [Unknown]
  - Incorrect route of product administration [Unknown]

NARRATIVE: CASE EVENT DATE: 20220101
